FAERS Safety Report 11783790 (Version 1)
Quarter: 2015Q4

REPORT INFORMATION
  Report Type: Spontaneous
  Country: US (occurrence: US)
  Receive Date: 20151127
  Receipt Date: 20151127
  Transmission Date: 20160305
  Serious: Yes (Death, Other)
  Sender: FDA-Public Use
  Company Number: US-BRISTOL-MYERS SQUIBB COMPANY-BMS-2015-080454

PATIENT
  Age: 87 Year
  Sex: Male
  Weight: 76.2 kg

DRUGS (2)
  1. LOVENOX [Suspect]
     Active Substance: ENOXAPARIN SODIUM
     Indication: PULMONARY EMBOLISM
     Dosage: 120 MG, QD
     Route: 058
     Dates: start: 20131212
  2. COUMADIN [Suspect]
     Active Substance: WARFARIN SODIUM
     Indication: PULMONARY EMBOLISM
     Route: 065

REACTIONS (2)
  - Pulmonary embolism [Unknown]
  - Death [Fatal]

NARRATIVE: CASE EVENT DATE: 20140814
